FAERS Safety Report 10241694 (Version 1)
Quarter: 2014Q2

REPORT INFORMATION
  Report Type: Spontaneous
  Country: AU (occurrence: AU)
  Receive Date: 20140617
  Receipt Date: 20140617
  Transmission Date: 20141212
  Serious: Yes (Hospitalization)
  Sender: FDA-Public Use
  Company Number: AU-TEVA-487756ISR

PATIENT
  Age: 75 Year
  Sex: Female

DRUGS (10)
  1. RASAGILINE MESILATE [Suspect]
     Dosage: 1 MILLIGRAM DAILY;
     Route: 048
     Dates: start: 20140408, end: 20140409
  2. ESOMEPRAZOLE MAGNESIUM [Concomitant]
     Dosage: 40 MILLIGRAM DAILY;
     Route: 048
  3. FRUSEMIDE [Concomitant]
     Dosage: 30 MILLIGRAM DAILY;
     Route: 048
  4. OXYCODONE HYDROCHLORIDE [Concomitant]
     Route: 048
  5. DIAZEPAM [Concomitant]
     Route: 048
  6. POTASSIUM CHLORIDE [Concomitant]
     Dosage: 600 MILLIGRAM DAILY;
     Route: 048
  7. PRAMIPEXOLE DIHYDROCHLORIDE [Concomitant]
     Dosage: 3 MILLIGRAM DAILY;
     Route: 048
  8. PREGABALIN [Concomitant]
     Dosage: 40 MILLIGRAM DAILY;
     Route: 048
  9. TEMAZEPAM [Concomitant]
     Route: 048
  10. TRIMETHOPRIM [Concomitant]
     Dosage: 300 MILLIGRAM DAILY;
     Route: 048

REACTIONS (6)
  - Chest pain [Recovered/Resolved]
  - Dyspnoea [Recovered/Resolved]
  - Nausea [Recovered/Resolved]
  - Hyperhidrosis [Recovered/Resolved]
  - Malaise [Recovered/Resolved]
  - Chest discomfort [Recovered/Resolved]
